FAERS Safety Report 23089653 (Version 3)
Quarter: 2023Q4

REPORT INFORMATION
  Report Type: Report from Study
  Country: US (occurrence: US)
  Receive Date: 20231020
  Receipt Date: 20231107
  Transmission Date: 20240110
  Serious: Yes (Other)
  Sender: FDA-Public Use
  Company Number: US-JAZZ PHARMACEUTICALS-2023-US-021341

PATIENT
  Sex: Female

DRUGS (5)
  1. XYREM [Suspect]
     Active Substance: SODIUM OXYBATE
     Indication: Hypersomnia
     Dosage: UNK
     Dates: start: 2005
  2. XYREM [Suspect]
     Active Substance: SODIUM OXYBATE
     Dosage: UNK
  3. IBUPROFEN [Concomitant]
     Active Substance: IBUPROFEN
     Indication: Headache
     Dosage: CAPLET
  4. NOVOLOG [Concomitant]
     Active Substance: INSULIN ASPART
     Indication: Product used for unknown indication
     Dosage: UNK
     Dates: start: 20060101
  5. METFORMIN HYDROCHLORIDE [Concomitant]
     Active Substance: METFORMIN HYDROCHLORIDE
     Indication: Product used for unknown indication
     Dosage: UNK
     Dates: start: 20060101

REACTIONS (7)
  - Diabetes mellitus [Unknown]
  - Polycystic ovarian syndrome [Unknown]
  - Attention deficit hyperactivity disorder [Unknown]
  - Obstructive sleep apnoea syndrome [Unknown]
  - Hypertension [Unknown]
  - Off label use [Unknown]
  - Drug ineffective [Unknown]
